FAERS Safety Report 7142011-1 (Version None)
Quarter: 2010Q4

REPORT INFORMATION
  Report Type: 
  Country: None (occurrence: None)
  Receive Date: 20101207
  Receipt Date: 20101130
  Transmission Date: 20110411
  Serious: Yes (Other)
  Sender: FDA-Public Use
  Company Number: A0882762A

PATIENT
  Sex: Female

DRUGS (1)
  1. VOTRIENT [Suspect]
     Dosage: 800MG PER DAY
     Route: 048
     Dates: start: 20100501, end: 20100920

REACTIONS (4)
  - BLOOD BILIRUBIN INCREASED [None]
  - FAECES PALE [None]
  - NAUSEA [None]
  - VOMITING [None]
